FAERS Safety Report 16755805 (Version 1)
Quarter: 2019Q3

REPORT INFORMATION
  Report Type: Report from Study
  Country: CR (occurrence: CR)
  Receive Date: 20190829
  Receipt Date: 20190829
  Transmission Date: 20191005
  Serious: Yes (Other)
  Sender: FDA-Public Use
  Company Number: PHHY2019CR200580

PATIENT
  Age: 62 Year
  Sex: Male

DRUGS (2)
  1. VYMADA [Suspect]
     Active Substance: SACUBITRIL\VALSARTAN
     Dosage: 50 MG (SACUBITRIL 24MG AND VALSARTAN 26MG), UNK
     Route: 065
  2. VYMADA [Suspect]
     Active Substance: SACUBITRIL\VALSARTAN
     Indication: PRODUCT USED FOR UNKNOWN INDICATION
     Dosage: 100 MG (SACUBITRIL 49MG AND VALSARTAN 51MG), UNK
     Route: 065
     Dates: start: 201812

REACTIONS (1)
  - Cardiac failure [Unknown]
